FAERS Safety Report 6305838-1 (Version None)
Quarter: 2009Q3

REPORT INFORMATION
  Report Type: 
  Country: None (occurrence: None)
  Receive Date: 20090812
  Receipt Date: 20090807
  Transmission Date: 20100115
  Serious: Yes (Life-Threatening, Hospitalization)
  Sender: FDA-Public Use
  Company Number: DE-BRISTOL-MYERS SQUIBB COMPANY-14404396

PATIENT
  Age: 51 Year
  Sex: Female

DRUGS (3)
  1. CETUXIMAB [Suspect]
     Indication: NON-SMALL CELL LUNG CANCER
     Dosage: STARTED ON 18-JUL-2008 REC'D 382.5 MG;RECENT INF:06NOV08.
     Route: 042
     Dates: start: 20080718, end: 20081106
  2. DOCETAXEL [Suspect]
     Indication: NON-SMALL CELL LUNG CANCER
     Dosage: STARTED 28-AUG-2008 REC'D 110 MG;RECENT INF:19SEP08. STOPPED ON 18SEP08
     Route: 042
     Dates: start: 20080828, end: 20080918
  3. GEMCITABINE [Suspect]
     Indication: NON-SMALL CELL LUNG CANCER
     Dosage: STARTED ON 17-JUL-1008 REC'D 1558 MG;RECENT INF:14AUG08.
     Route: 042
     Dates: start: 20080717, end: 20080814

REACTIONS (4)
  - ABDOMINAL PAIN [None]
  - ASCITES [None]
  - ILEUS PARALYTIC [None]
  - PERICARDIAL EFFUSION [None]
